FAERS Safety Report 5565314-0 (Version None)
Quarter: 2007Q4

REPORT INFORMATION
  Report Type: 
  Country: None (occurrence: None)
  Receive Date: 20071218
  Receipt Date: 20030409
  Transmission Date: 20080405
  Serious: Yes (Death, Hospitalization)
  Sender: FDA-Public Use
  Company Number: MX-ROCHE-335605

PATIENT
  Age: 83 Year
  Sex: Male

DRUGS (1)
  1. NAPROXEN [Suspect]
     Route: 065

REACTIONS (4)
  - ANGINA PECTORIS [None]
  - GASTRIC ULCER [None]
  - NEOPLASM MALIGNANT [None]
  - WHITE BLOOD CELL COUNT ABNORMAL [None]
